FAERS Safety Report 6240919-2 (Version None)
Quarter: 2009Q2

REPORT INFORMATION
  Report Type: 
  Country: None (occurrence: None)
  Receive Date: 20090623
  Receipt Date: 20090611
  Transmission Date: 20091009
  Serious: Yes (Other)
  Sender: FDA-Public Use
  Company Number: US-AVENTIS-200915298US

PATIENT
  Age: 57 Year
  Sex: Male

DRUGS (3)
  1. LANTUS [Suspect]
     Dosage: DOSE: UNK
     Route: 058
  2. LANTUS [Suspect]
     Route: 058
     Dates: start: 20090301
  3. NOVOLOG [Concomitant]
     Dosage: DOSE: UNK

REACTIONS (9)
  - BLOOD GLUCOSE INCREASED [None]
  - DIZZINESS [None]
  - EYE DISORDER [None]
  - HYPERTENSION [None]
  - MEDICATION ERROR [None]
  - RENAL FAILURE [None]
  - RETINAL DETACHMENT [None]
  - THIRST [None]
  - VISION BLURRED [None]
